FAERS Safety Report 7355154-4 (Version None)
Quarter: 2011Q1

REPORT INFORMATION
  Report Type: 
  Country: None (occurrence: None)
  Receive Date: 20110311
  Receipt Date: 20110311
  Transmission Date: 20110831
  Serious: Yes (Other)
  Sender: FDA-Public Use
  Company Number: None

PATIENT
  Age: 60 Year
  Sex: Female
  Weight: 78.4723 kg

DRUGS (1)
  1. FOSAMAX [Suspect]

REACTIONS (3)
  - HIP FRACTURE [None]
  - OSTEOPOROSIS [None]
  - KNEE ARTHROPLASTY [None]
